FAERS Safety Report 19650126 (Version 1)
Quarter: 2021Q3

REPORT INFORMATION
  Report Type: Spontaneous
  Country: US (occurrence: US)
  Receive Date: 20210802
  Receipt Date: 20210802
  Transmission Date: 20211014
  Serious: Yes (Hospitalization)
  Sender: FDA-Public Use
  Company Number: None

PATIENT
  Age: 80 Year
  Sex: Female
  Weight: 54.9 kg

DRUGS (9)
  1. LOMOTIL 2.5?0.025MG [Concomitant]
     Dates: start: 20210526
  2. CAPECITABINE TABLET [Suspect]
     Active Substance: CAPECITABINE
     Indication: NEOPLASM MALIGNANT
     Route: 048
     Dates: start: 20210529, end: 20210702
  3. ZOFRAN [Concomitant]
     Active Substance: ONDANSETRON HYDROCHLORIDE
     Dates: start: 20210526
  4. MARINOL 2.5MG [Concomitant]
     Dates: start: 20210526
  5. ZYVOX [Concomitant]
     Active Substance: LINEZOLID
     Dates: start: 20210526
  6. LOPRESSOR 100MG [Concomitant]
     Dates: start: 20210526
  7. NORVASC 2.5MG [Concomitant]
     Dates: start: 20210526
  8. BENICAR [Concomitant]
     Active Substance: OLMESARTAN MEDOXOMIL
     Dates: start: 20210526
  9. NORCO 5?325MG [Concomitant]
     Dates: start: 20210526

REACTIONS (2)
  - Illness [None]
  - Vomiting [None]

NARRATIVE: CASE EVENT DATE: 20210702
